FAERS Safety Report 24937068 (Version 5)
Quarter: 2025Q1

REPORT INFORMATION
  Report Type: Spontaneous
  Country: AT (occurrence: AT)
  Receive Date: 20250206
  Receipt Date: 20250318
  Transmission Date: 20250408
  Serious: No
  Sender: PFIZER
  Company Number: AT-PFIZER INC-PV202500013388

PATIENT
  Age: 9 Year
  Sex: Male

DRUGS (1)
  1. GENOTROPIN [Suspect]
     Active Substance: SOMATROPIN

REACTIONS (3)
  - Incorrect dose administered by device [Unknown]
  - Device leakage [Unknown]
  - Drug dose omission by device [Unknown]
